FAERS Safety Report 21390383 (Version 1)
Quarter: 2022Q3

REPORT INFORMATION
  Report Type: Spontaneous
  Country: US (occurrence: US)
  Receive Date: 20220929
  Receipt Date: 20220929
  Transmission Date: 20221027
  Serious: No
  Sender: FDA-Public Use
  Company Number: US-BRISTOL-MYERS SQUIBB COMPANY-2022-113152

PATIENT
  Age: 79 Year
  Sex: Male
  Weight: 78.01 kg

DRUGS (1)
  1. REVLIMID [Suspect]
     Active Substance: LENALIDOMIDE
     Indication: Plasma cell myeloma
     Dosage: DAILY FOR 2 WEEKS OFF 1 WEEK
     Route: 048
     Dates: start: 202006

REACTIONS (2)
  - Constipation [Not Recovered/Not Resolved]
  - Muscular weakness [Not Recovered/Not Resolved]
